FAERS Safety Report 10011812 (Version 1)
Quarter: 2014Q1

REPORT INFORMATION
  Report Type: Spontaneous
  Country: US (occurrence: None)
  Receive Date: 20140312
  Receipt Date: 20140312
  Transmission Date: 20141002
  Serious: Yes (Hospitalization)
  Sender: FDA-Public Use
  Company Number: UTC-045547

PATIENT
  Age: 53 Year
  Sex: Female

DRUGS (3)
  1. REMODULIN (0.075 MILLIGRAM/MILLITERS, INJECTION FOR INFUSION) (TREPROSTINIL SODIUM) [Suspect]
     Indication: PULMONARY ARTERIAL HYPERTENSION
     Dosage: (0.02 UG/KG,  1 IN 1 MIN)
     Route: 041
  2. LETAIRIS (AMBRISENTAN) (TABLETS) [Concomitant]
  3. REVATIO (SILDENAFIL CITRATE) [Concomitant]

REACTIONS (4)
  - Loss of consciousness [None]
  - Dyspnoea [None]
  - Hypokalaemia [None]
  - Urinary tract infection [None]
